FAERS Safety Report 25476901 (Version 1)
Quarter: 2025Q2

REPORT INFORMATION
  Report Type: Spontaneous
  Country: US (occurrence: US)
  Receive Date: 20250625
  Receipt Date: 20250625
  Transmission Date: 20250717
  Serious: No
  Sender: AILEX PHARMACEUTICALS LLC
  Company Number: US-AP-2025-6639

PATIENT
  Sex: Female

DRUGS (1)
  1. CROMOLYN SODIUM [Suspect]
     Active Substance: CROMOLYN SODIUM
     Indication: Mastocytosis

REACTIONS (2)
  - Product distribution issue [Unknown]
  - Product substitution issue [Unknown]
